FAERS Safety Report 5899767-5 (Version None)
Quarter: 2008Q3

REPORT INFORMATION
  Report Type: 
  Country: None (occurrence: None)
  Receive Date: 20080926
  Receipt Date: 20080919
  Transmission Date: 20090109
  Serious: Yes (Other)
  Sender: FDA-Public Use
  Company Number: ZM-ABBOTT-08P-189-0477277-00

PATIENT
  Sex: Male
  Weight: 65 kg

DRUGS (1)
  1. CIPRALEX FILM-COATED TABLETS [Suspect]
     Indication: DEPRESSION
     Route: 048

REACTIONS (1)
  - LEUKOCYTOCLASTIC VASCULITIS [None]
